FAERS Safety Report 23757640 (Version 2)
Quarter: 2024Q2

REPORT INFORMATION
  Report Type: Spontaneous
  Country: GB (occurrence: GB)
  Receive Date: 20240418
  Receipt Date: 20240502
  Transmission Date: 20240715
  Serious: Yes (Hospitalization, Other)
  Sender: FDA-Public Use
  Company Number: None

PATIENT
  Age: 80 Year
  Sex: Male
  Weight: 71.6 kg

DRUGS (9)
  1. ABIRATERONE [Suspect]
     Active Substance: ABIRATERONE
     Indication: Hormone-dependent prostate cancer
     Dosage: 1000 MG, QD
     Route: 048
     Dates: start: 20230615, end: 20230916
  2. ABIRATERONE [Suspect]
     Active Substance: ABIRATERONE
     Dosage: 1000 MG, QD
     Route: 048
     Dates: start: 20230615, end: 20230927
  3. ABEMACICLIB [Suspect]
     Active Substance: ABEMACICLIB
     Indication: Hormone-dependent prostate cancer
     Dosage: UNK
     Route: 065
     Dates: start: 20230615, end: 20230916
  4. ABEMACICLIB [Suspect]
     Active Substance: ABEMACICLIB
     Indication: Hormone-dependent prostate cancer
     Dosage: UNK
     Route: 065
     Dates: start: 20230615, end: 20230909
  5. PREDNISOLONE [Suspect]
     Active Substance: PREDNISOLONE
     Indication: Hormone-dependent prostate cancer
     Dosage: 5 MG, QD
     Route: 048
     Dates: start: 20230615, end: 20230909
  6. PREDNISOLONE [Suspect]
     Active Substance: PREDNISOLONE
     Indication: Hormone-dependent prostate cancer
  7. PREDNISOLONE [Suspect]
     Active Substance: PREDNISOLONE
     Indication: Dyspnoea
  8. AMLODIPINE [Concomitant]
     Active Substance: AMLODIPINE BESYLATE
     Indication: Product used for unknown indication
     Dates: start: 202304
  9. TRIPTORELIN [Concomitant]
     Active Substance: TRIPTORELIN
     Indication: Product used for unknown indication

REACTIONS (5)
  - Fatigue [Recovered/Resolved]
  - Oral candidiasis [Recovered/Resolved]
  - Dyspnoea [Recovered/Resolved]
  - Sepsis [Unknown]
  - Decreased appetite [Unknown]

NARRATIVE: CASE EVENT DATE: 20230701
